FAERS Safety Report 8444330-5 (Version None)
Quarter: 2012Q2

REPORT INFORMATION
  Report Type: 
  Country: None (occurrence: None)
  Receive Date: 20120618
  Receipt Date: 20120605
  Transmission Date: 20120825
  Serious: Yes (Life-Threatening)
  Sender: FDA-Public Use
  Company Number: JP-VERTEX PHARMACEUTICALS INC.-AE-2012-007797

PATIENT
  Sex: Male

DRUGS (19)
  1. TELAVIC (TELAPREVIR) [Suspect]
     Route: 048
     Dates: start: 20120313, end: 20120417
  2. RIBAVIRIN [Concomitant]
     Route: 048
     Dates: start: 20120229, end: 20120305
  3. LOXONIN [Concomitant]
     Route: 048
     Dates: start: 20120124
  4. RABEPRAZOLE SODIUM [Concomitant]
     Route: 048
     Dates: start: 20120526
  5. TELAVIC (TELAPREVIR) [Suspect]
     Indication: HEPATITIS C
     Route: 048
     Dates: start: 20120124, end: 20120312
  6. RIBAVIRIN [Concomitant]
     Indication: HEPATITIS C
     Route: 048
     Dates: start: 20120124, end: 20120228
  7. DIOVAN [Concomitant]
     Route: 048
     Dates: end: 20120417
  8. WYTENS [Concomitant]
     Route: 048
     Dates: end: 20120519
  9. MEROPENEM [Concomitant]
     Dates: start: 20120519, end: 20120528
  10. RIBAVIRIN [Concomitant]
     Route: 048
     Dates: start: 20120306, end: 20120519
  11. ADALAT CC [Concomitant]
     Route: 048
     Dates: end: 20120519
  12. OMEPRAZOLE [Concomitant]
     Dates: start: 20120519, end: 20120525
  13. HEPARIN AND PREPARATIONS [Concomitant]
     Dates: start: 20120519, end: 20120529
  14. MIDAZOLAM [Concomitant]
     Dates: start: 20120519, end: 20120525
  15. FENTANYL [Concomitant]
     Dates: start: 20120519, end: 20120525
  16. COTRIM [Concomitant]
     Route: 048
     Dates: start: 20120524, end: 20120529
  17. HALOPERIDOL [Concomitant]
     Indication: SEDATION
     Dates: start: 20120520, end: 20120521
  18. PEG-INTRON [Concomitant]
     Indication: HEPATITIS C
     Route: 051
     Dates: start: 20120124, end: 20120515
  19. NIZATIDINE [Concomitant]
     Route: 048
     Dates: start: 20120124, end: 20120519

REACTIONS (4)
  - PLEURAL EFFUSION [None]
  - CARDIAC FAILURE [None]
  - VENTRICULAR FIBRILLATION [None]
  - INTERSTITIAL LUNG DISEASE [None]
